FAERS Safety Report 7892746-8 (Version None)
Quarter: 2011Q4

REPORT INFORMATION
  Report Type: 
  Country: None (occurrence: None)
  Receive Date: 20111104
  Receipt Date: 20111026
  Transmission Date: 20120403
  Serious: Yes (Death, Other)
  Sender: FDA-Public Use
  Company Number: KZ-GENZYME-CERZ-1002289

PATIENT
  Sex: Female
  Weight: 10 kg

DRUGS (1)
  1. CEREZYME [Suspect]
     Indication: GAUCHER'S DISEASE
     Dosage: 60 MG/KG, Q2W
     Route: 042
     Dates: start: 20111001

REACTIONS (3)
  - CONVULSION [None]
  - DEATH [None]
  - ASPHYXIA [None]
